FAERS Safety Report 12067466 (Version 1)
Quarter: 2016Q1

REPORT INFORMATION
  Report Type: Spontaneous
  Country: BR (occurrence: BR)
  Receive Date: 20160211
  Receipt Date: 20160211
  Transmission Date: 20160526
  Serious: Yes (Other)
  Sender: FDA-Public Use
  Company Number: BR-SA-2016SA023550

PATIENT
  Sex: Female

DRUGS (5)
  1. DEFLAZACORT [Concomitant]
     Active Substance: DEFLAZACORT
  2. LEFLUNOMIDE. [Suspect]
     Active Substance: LEFLUNOMIDE
     Indication: RHEUMATOID ARTHRITIS
     Route: 065
  3. LEFLUNOMIDE. [Suspect]
     Active Substance: LEFLUNOMIDE
     Indication: RHEUMATOID ARTHRITIS
     Route: 065
  4. METHOTREXATE [Concomitant]
     Active Substance: METHOTREXATE
     Indication: RHEUMATOID ARTHRITIS
  5. METHOTREXATE [Concomitant]
     Active Substance: METHOTREXATE
     Indication: RHEUMATOID ARTHRITIS

REACTIONS (10)
  - Rheumatoid nodule [Recovered/Resolved]
  - Vocal cord thickening [Recovered/Resolved]
  - Cough [Recovered/Resolved]
  - Pulmonary vasculitis [Unknown]
  - Laryngitis [Unknown]
  - Rheumatoid lung [Recovered/Resolved]
  - Pulmonary necrosis [Unknown]
  - Pulmonary cavitation [Unknown]
  - Dyspnoea exertional [Recovered/Resolved]
  - Lymphocytic infiltration [Unknown]
